FAERS Safety Report 8496194-1 (Version None)
Quarter: 2012Q3

REPORT INFORMATION
  Report Type: 
  Country: None (occurrence: None)
  Receive Date: 20120709
  Receipt Date: 20120726
  Transmission Date: 20120928
  Serious: Yes (Hospitalization, Other)
  Sender: FDA-Public Use
  Company Number: NL-TEVA-346165ISR

PATIENT
  Sex: Female
  Weight: 65 kg

DRUGS (1)
  1. TERBINAFINE HYDROCHLORIDE [Suspect]
     Indication: FUNGAL INFECTION
     Dosage: 250 MILLIGRAM;
     Dates: start: 20120521

REACTIONS (2)
  - ANAPHYLACTIC SHOCK [None]
  - PHOTOSENSITIVITY ALLERGIC REACTION [None]
